FAERS Safety Report 4410734-0 (Version None)
Quarter: 2004Q2

REPORT INFORMATION
  Report Type: 
  Country: None (occurrence: None)
  Receive Date: 20040630
  Receipt Date: 20040427
  Transmission Date: 20050107
  Serious: No
  Sender: FDA-Public Use
  Company Number: 04P-163-0258890-00

PATIENT
  Age: 82 Year
  Sex: Female

DRUGS (1)
  1. HUMIRA [Suspect]
     Indication: RHEUMATOID ARTHRITIS
     Dosage: 40 MG, 1 IN 2 WK, SUBCUTANEOUS
     Route: 058
     Dates: start: 20030301, end: 20030101

REACTIONS (11)
  - CYSTITIS [None]
  - DRUG EFFECT DECREASED [None]
  - FALL [None]
  - FEELING ABNORMAL [None]
  - LOWER LIMB FRACTURE [None]
  - NAUSEA [None]
  - PAIN [None]
  - POLLAKIURIA [None]
  - SYNCOPE [None]
  - URTICARIA [None]
  - VISUAL DISTURBANCE [None]
